FAERS Safety Report 10055552 (Version 1)
Quarter: 2014Q2

REPORT INFORMATION
  Report Type: Spontaneous
  Country: US (occurrence: US)
  Receive Date: 20140403
  Receipt Date: 20140403
  Transmission Date: 20141212
  Serious: Yes (Other)
  Sender: FDA-Public Use
  Company Number: US-009507513-1404USA001089

PATIENT
  Age: 52 Year
  Sex: Female

DRUGS (3)
  1. EMEND [Suspect]
     Indication: NAUSEA
     Dosage: UNK
     Route: 048
     Dates: end: 201403
  2. EMEND [Suspect]
     Indication: VOMITING
  3. ANTINEOPLASTIC (UNSPECIFIED) [Concomitant]

REACTIONS (1)
  - Stevens-Johnson syndrome [Unknown]
